FAERS Safety Report 9940583 (Version 2)
Quarter: 2014Q1

REPORT INFORMATION
  Report Type: Spontaneous
  Country: US (occurrence: US)
  Receive Date: 20140303
  Receipt Date: 20140320
  Transmission Date: 20141002
  Serious: No
  Sender: FDA-Public Use
  Company Number: US-PFIZER INC-2014060248

PATIENT
  Age: 56 Year
  Sex: Male
  Weight: 79.37 kg

DRUGS (1)
  1. LYRICA [Suspect]
     Indication: NEUROPATHY PERIPHERAL
     Dosage: 100 MG, 3X/DAY
     Dates: start: 2013, end: 201402

REACTIONS (2)
  - Pain in extremity [Unknown]
  - Dysstasia [Unknown]
